FAERS Safety Report 24393279 (Version 1)
Quarter: 2024Q4

REPORT INFORMATION
  Report Type: Spontaneous
  Country: US (occurrence: None)
  Receive Date: 20241003
  Receipt Date: 20241003
  Transmission Date: 20250114
  Serious: No
  Sender: Public
  Company Number: None

PATIENT
  Age: 67 Year
  Sex: Female
  Weight: 113.4 kg

DRUGS (1)
  1. COSENTYX [Suspect]
     Active Substance: SECUKINUMAB
     Indication: Psoriatic arthropathy
     Dosage: OTHER FREQUENCY : ONCEAWKFOR5WKSASDIR;?
     Route: 058
     Dates: start: 202307

REACTIONS (3)
  - Arthropod sting [None]
  - COVID-19 [None]
  - Therapy interrupted [None]
